FAERS Safety Report 5353352-2 (Version None)
Quarter: 2007Q2

REPORT INFORMATION
  Report Type: 
  Country: None (occurrence: None)
  Receive Date: 20070518
  Receipt Date: 20070319
  Transmission Date: 20071010
  Serious: No
  Sender: FDA-Public Use
  Company Number: TPA2007A00646

PATIENT
  Age: 75 Year
  Sex: Male
  Weight: 97.0698 kg

DRUGS (5)
  1. ROZEREM [Suspect]
     Indication: INSOMNIA
     Dosage: 8 MG, QHS, PER ORAL
     Route: 048
     Dates: start: 20070314, end: 20070317
  2. LOVASTATIN [Concomitant]
  3. ASPIRIN [Concomitant]
  4. THYROXINE (ALL OTHER THERAPEUTIC PRODUCTS) [Concomitant]
  5. AMBIEN [Concomitant]

REACTIONS (5)
  - DRUG INEFFECTIVE [None]
  - DRY MOUTH [None]
  - NERVOUSNESS [None]
  - PARAESTHESIA [None]
  - POOR QUALITY SLEEP [None]
